FAERS Safety Report 9708064 (Version 2)
Quarter: 2014Q1

REPORT INFORMATION
  Report Type: Spontaneous
  Country: JP (occurrence: JP)
  Receive Date: 20131125
  Receipt Date: 20140328
  Transmission Date: 20141002
  Serious: No
  Sender: FDA-Public Use
  Company Number: JP-PFIZER INC-2013332952

PATIENT
  Age: 7 Decade
  Sex: Female

DRUGS (2)
  1. AROMASIN [Suspect]
     Indication: BREAST CANCER METASTATIC
     Dosage: UNK
     Route: 048
  2. TOREMIFENE CITRATE [Concomitant]
     Indication: BREAST CANCER METASTATIC
     Dosage: UNK

REACTIONS (2)
  - Disease progression [Unknown]
  - Breast cancer metastatic [Unknown]
